FAERS Safety Report 20814247 (Version 2)
Quarter: 2022Q2

REPORT INFORMATION
  Report Type: Spontaneous
  Country: GB (occurrence: GB)
  Receive Date: 20220511
  Receipt Date: 20220523
  Transmission Date: 20220721
  Serious: Yes (Other)
  Sender: FDA-Public Use
  Company Number: GB-OTSUKA-2022_026377

PATIENT
  Age: 56 Year
  Sex: Female

DRUGS (2)
  1. ABILIFY MAINTENA [Suspect]
     Active Substance: ARIPIPRAZOLE
     Indication: Product used for unknown indication
     Dosage: UNK, QM
     Route: 065
     Dates: start: 202108
  2. ABILIFY [Suspect]
     Active Substance: ARIPIPRAZOLE
     Indication: Product used for unknown indication
     Dosage: UNK
     Route: 065
     Dates: start: 202107

REACTIONS (20)
  - Brain injury [Unknown]
  - Myocardial infarction [Unknown]
  - Adverse event [Unknown]
  - Bone density abnormal [Unknown]
  - Daydreaming [Unknown]
  - Injury [Unknown]
  - Amnesia [Unknown]
  - Injection site mass [Unknown]
  - Flushing [Unknown]
  - Muscular weakness [Unknown]
  - Sleep disorder [Unknown]
  - Dyspnoea [Unknown]
  - Increased appetite [Unknown]
  - Back pain [Unknown]
  - Nasal congestion [Unknown]
  - Drooling [Unknown]
  - Headache [Unknown]
  - Weight increased [Unknown]
  - Dizziness [Unknown]
  - Dizziness [Unknown]

NARRATIVE: CASE EVENT DATE: 20210701
